FAERS Safety Report 8812009 (Version 1)
Quarter: 2012Q4

REPORT INFORMATION
  Report Type: Spontaneous
  Country: US (occurrence: None)
  Receive Date: 20120926
  Receipt Date: 20120926
  Transmission Date: 20130627
  Serious: No
  Sender: FDA-Public Use
  Company Number: None

PATIENT
  Age: 77 Year
  Sex: Male

DRUGS (1)
  1. EXJADE [Suspect]
     Dosage: 1000mg daily po
     Route: 048
     Dates: start: 20120711, end: 20120716

REACTIONS (3)
  - Epistaxis [None]
  - Abdominal discomfort [None]
  - Haematochezia [None]
